FAERS Safety Report 4542360-7 (Version None)
Quarter: 2004Q4

REPORT INFORMATION
  Report Type: 
  Country: None (occurrence: None)
  Receive Date: 20041229
  Receipt Date: 20041221
  Transmission Date: 20050328
  Serious: Yes (Death, Hospitalization)
  Sender: FDA-Public Use
  Company Number: 04-12-1783

PATIENT
  Age: 84 Year
  Sex: Male

DRUGS (11)
  1. LISINOPRIL [Suspect]
     Dosage: ORAL
     Route: 048
  2. METFORMIN HCL [Suspect]
     Indication: DIABETES MELLITUS NON-INSULIN-DEPENDENT
     Dosage: 1000MG BD ORAL
     Route: 048
     Dates: start: 20010101
  3. ROSIGLITAZONE MALEATE [Suspect]
     Indication: DIABETES MELLITUS NON-INSULIN-DEPENDENT
     Dosage: 4MG ORAL
     Route: 048
  4. ASPIRIN [Concomitant]
  5. DOTHIEPIN HYDROCHLORIDE [Concomitant]
  6. FLUOXETINE [Concomitant]
  7. GLICLAZIDE [Concomitant]
  8. LEVOTHYROXINE SODIUM [Concomitant]
  9. RABEPRAZOLE SODIUM [Concomitant]
  10. FRUSEMIDE [Concomitant]
  11. INSULIN [Concomitant]

REACTIONS (14)
  - BUNDLE BRANCH BLOCK RIGHT [None]
  - CARDIAC FAILURE CONGESTIVE [None]
  - COAGULOPATHY [None]
  - DYSPNOEA [None]
  - GENERAL PHYSICAL HEALTH DETERIORATION [None]
  - HEPATOCELLULAR DAMAGE [None]
  - HEPATOMEGALY [None]
  - LOWER RESPIRATORY TRACT INFECTION [None]
  - LUNG CREPITATION [None]
  - MALAISE [None]
  - OEDEMA [None]
  - PLEURAL EFFUSION [None]
  - RENAL IMPAIRMENT [None]
  - TACHYPNOEA [None]
